FAERS Safety Report 9507942 (Version 2)
Quarter: 2013Q3

REPORT INFORMATION
  Report Type: Report from Study
  Country: NL (occurrence: NL)
  Receive Date: 20130909
  Receipt Date: 20130909
  Transmission Date: 20140515
  Serious: Yes (Life-Threatening, Hospitalization)
  Sender: FDA-Public Use
  Company Number: PHHO2011NL17752

PATIENT
  Age: 65 Year
  Sex: Female
  Weight: 79.7 kg

DRUGS (5)
  1. NO TREATMENT RECEIVED [Suspect]
     Indication: CARDIOVASCULAR DISORDER
     Dosage: ACTIVE RUN-IN PHASE
  2. AMLODIPINE [Suspect]
     Dosage: 5 MG, UNK
     Dates: end: 20110927
  3. ALISKIREN [Suspect]
  4. INDAPAMIDE [Concomitant]
     Dosage: 1.2 MG, UNK
  5. PERINDOPRIL [Concomitant]
     Dosage: 5 MG, UNK

REACTIONS (2)
  - Colon cancer [Recovering/Resolving]
  - Loss of consciousness [Recovering/Resolving]
